FAERS Safety Report 25060287 (Version 3)
Quarter: 2025Q4

REPORT INFORMATION
  Report Type: Spontaneous
  Country: US (occurrence: US)
  Receive Date: 20250310
  Receipt Date: 20251216
  Transmission Date: 20260118
  Serious: No
  Sender: SANOFI AVENTIS
  Company Number: US-SA-2025SA068027

PATIENT
  Age: 73 Year
  Sex: Female
  Weight: 82.1 kg

DRUGS (27)
  1. DUPIXENT [Suspect]
     Active Substance: DUPILUMAB
     Indication: Dermatitis atopic
     Dosage: 600 MG, 1X
     Route: 058
  2. DUPIXENT [Suspect]
     Active Substance: DUPILUMAB
     Dosage: 300 MG, QOW
     Route: 058
  3. DUPIXENT [Suspect]
     Active Substance: DUPILUMAB
     Dosage: 300 MG, Q3W
     Route: 058
  4. TACROLIMUS [Concomitant]
     Active Substance: TACROLIMUS
  5. GOLD BOND INTENSIVE HEALING [Concomitant]
  6. OMEPRAZOLE [Concomitant]
     Active Substance: OMEPRAZOLE
  7. YUVAFEM [Concomitant]
     Active Substance: ESTRADIOL HEMIHYDRATE
  8. REFRESH CELLUVISC [Concomitant]
     Active Substance: CARBOXYMETHYLCELLULOSE SODIUM
  9. VANICREAM [Concomitant]
     Active Substance: TITANIUM DIOXIDE\ZINC OXIDE
  10. METOPROLOL SUCCINATE [Concomitant]
     Active Substance: METOPROLOL SUCCINATE
  11. FEBUXOSTAT [Concomitant]
     Active Substance: FEBUXOSTAT
  12. ISOSORBIDE DINITRATE [Concomitant]
     Active Substance: ISOSORBIDE DINITRATE
  13. COLCHICINE [Concomitant]
     Active Substance: COLCHICINE
  14. FAMCICLOVIR [Concomitant]
     Active Substance: FAMCICLOVIR
  15. BUTENAFINE HCL [Concomitant]
  16. COENZYME Q10 [Concomitant]
     Active Substance: DIETARY SUPPLEMENT\UBIDECARENONE
  17. COLACE [Concomitant]
     Active Substance: DOCUSATE SODIUM
  18. ATORVASTATIN CALCIUM [Concomitant]
     Active Substance: ATORVASTATIN CALCIUM
  19. VITAMIN D3 [Concomitant]
     Active Substance: CHOLECALCIFEROL
  20. REFRESH CLASSIC LUBRICANT EYE DROPS [Concomitant]
  21. BUDESONIDE [Concomitant]
     Active Substance: BUDESONIDE
  22. PRED FORTE [Concomitant]
     Active Substance: PREDNISOLONE ACETATE
     Dosage: UNK
  23. ZINC OXIDE [Concomitant]
     Active Substance: ZINC OXIDE
     Dosage: UNK
  24. VITAMIN A [Concomitant]
     Active Substance: VITAMIN A
     Dosage: UNK
  25. VITAMIN C [Concomitant]
     Active Substance: ASCORBIC ACID
     Dosage: UNK
  26. DIETARY SUPPLEMENT\PROBIOTICS [Concomitant]
     Active Substance: DIETARY SUPPLEMENT\PROBIOTICS NOS
     Dosage: UNK
  27. ASPIRIN [Concomitant]
     Active Substance: ASPIRIN
     Dosage: UNK

REACTIONS (8)
  - Pruritus [Unknown]
  - Eye swelling [Unknown]
  - Eye discharge [Unknown]
  - Lacrimation increased [Unknown]
  - Eye pain [Unknown]
  - Dry eye [Unknown]
  - Eye irritation [Unknown]
  - Intentional product misuse [Unknown]
